FAERS Safety Report 6567202-X (Version None)
Quarter: 2010Q1

REPORT INFORMATION
  Report Type: 
  Country: None (occurrence: None)
  Receive Date: 20100202
  Receipt Date: 20100126
  Transmission Date: 20100710
  Serious: Yes (Hospitalization, Other)
  Sender: FDA-Public Use
  Company Number: BR-SANOFI-AVENTIS-2010SA005274

PATIENT
  Sex: Male
  Weight: 106 kg

DRUGS (19)
  1. LANTUS [Suspect]
     Indication: DIABETES MELLITUS MANAGEMENT
     Route: 058
     Dates: start: 20040101
  2. AMARYL [Suspect]
     Indication: DIABETES MELLITUS MANAGEMENT
     Dosage: 1 TABLET IN THE MORNING AND 0.5 TABLET AT NIGHT.
     Route: 048
     Dates: start: 20080101
  3. INSULIN PEN NOS [Suspect]
  4. ALDACTONE [Concomitant]
     Route: 048
     Dates: start: 19980101
  5. ALDACTONE [Concomitant]
     Indication: HYPERALDOSTERONISM
     Route: 048
     Dates: start: 19980101
  6. ANCORON [Concomitant]
     Route: 048
  7. ATENOLOL [Concomitant]
     Route: 048
     Dates: start: 19980101
  8. CAPTOPRIL [Concomitant]
     Route: 048
     Dates: start: 19980101
  9. ATORVASTATIN CALCIUM [Concomitant]
     Route: 048
     Dates: start: 19960101
  10. ATORVASTATIN CALCIUM [Concomitant]
     Route: 048
     Dates: start: 19960101
  11. WARFARIN SODIUM [Concomitant]
     Indication: THROMBOSIS
     Dosage: 1 TABLET
     Route: 048
     Dates: start: 19980101
  12. WARFARIN SODIUM [Concomitant]
     Dosage: 1 TABLET
     Route: 048
     Dates: start: 19980101
  13. MONOCORDIL [Concomitant]
     Indication: CARDIOMYOPATHY
     Route: 048
     Dates: start: 19980101
  14. MONOCORDIL [Concomitant]
     Indication: CARDIOVASCULAR DISORDER
     Route: 048
     Dates: start: 19980101
  15. OMEPRAZOLE [Concomitant]
     Dosage: FASTING
     Route: 048
  16. PLASIL [Concomitant]
     Indication: NAUSEA
     Dosage: 1 TABLET
     Route: 048
  17. MIRTAZAPINE [Concomitant]
     Indication: PANIC DISORDER
     Route: 048
     Dates: start: 19960101
  18. SUSTRATE [Concomitant]
     Indication: ANGINA PECTORIS
     Route: 048
     Dates: start: 19980101
  19. VALIUM [Concomitant]
     Indication: PANIC DISORDER
     Dosage: 1 TABLET A DAY OR 1 TABLET IN THE MORNING AND 1 TABLET AT NIGHT (DEPENDING ON NEED).
     Route: 048
     Dates: start: 19860101

REACTIONS (2)
  - HYPERGLYCAEMIA [None]
  - SUBCUTANEOUS ABSCESS [None]
